FAERS Safety Report 19439183 (Version 1)
Quarter: 2021Q2

REPORT INFORMATION
  Report Type: Spontaneous
  Country: US (occurrence: US)
  Receive Date: 20210618
  Receipt Date: 20210618
  Transmission Date: 20210717
  Serious: No
  Sender: FDA-Public Use
  Company Number: US-ALMIRALL, LLC-2020AQU000488

PATIENT

DRUGS (1)
  1. CORDRAN [Suspect]
     Active Substance: FLURANDRENOLIDE
     Indication: SKIN DISORDER
     Dosage: ONCE DAILY BY CUTTING A PIECE THE SIZE OF THE BUMP AND PUTTING IT OVER IT
     Route: 061
     Dates: start: 202009, end: 202010

REACTIONS (2)
  - Drug ineffective [Unknown]
  - Pallor [Unknown]

NARRATIVE: CASE EVENT DATE: 2020
